FAERS Safety Report 8828178 (Version 6)
Quarter: 2013Q3

REPORT INFORMATION
  Report Type: Spontaneous
  Country: US (occurrence: US)
  Receive Date: 20121005
  Receipt Date: 20130829
  Transmission Date: 20140515
  Serious: Yes (Hospitalization, Congenital Anomaly, Other)
  Sender: FDA-Public Use
  Company Number: US-PFIZER INC-2012244092

PATIENT
  Sex: Male
  Weight: 3.4 kg

DRUGS (10)
  1. ZOLOFT [Suspect]
     Indication: POSTPARTUM DEPRESSION
     Dosage: 100 MG, 1X/DAY
     Route: 064
     Dates: start: 20090707, end: 20100217
  2. PRENATAL VITAMINS [Concomitant]
     Dosage: UNK
     Route: 064
     Dates: start: 20100217, end: 20101005
  3. RANITIDINE [Concomitant]
     Indication: GASTROOESOPHAGEAL REFLUX DISEASE
     Dosage: UNK
     Route: 064
     Dates: end: 20101005
  4. FENTANYL [Concomitant]
     Dosage: 100 UG, UNK
     Route: 064
     Dates: start: 20101006, end: 20101006
  5. FENTANYL [Concomitant]
     Dosage: 200 UG, UNK
     Route: 064
     Dates: start: 20101006, end: 20101010
  6. ROPIVACAINE [Concomitant]
     Dosage: 0.2 %, UNK
     Route: 064
     Dates: start: 20101006, end: 20101010
  7. PROMETHAZINE [Concomitant]
     Indication: NAUSEA
     Dosage: 12.5 MG/50 ML AT 100 ML/MIN FOR 30 MIN
     Route: 064
     Dates: start: 20101006
  8. PROMETHAZINE [Concomitant]
     Dosage: 25 MG/100 ML AT 200 ML/MIN FOR 30 MIN
     Route: 064
     Dates: start: 20101006
  9. OXYTOCIN [Concomitant]
     Dosage: 10 UNITS/500 ML
     Route: 064
     Dates: start: 20101006
  10. IBUPROFEN [Concomitant]
     Indication: PAIN
     Dosage: 800 MG, EVERY 8 HOURS, AS NEEDED
     Route: 064
     Dates: start: 20101006, end: 20101105

REACTIONS (4)
  - Maternal exposure timing unspecified [Unknown]
  - Craniosynostosis [Unknown]
  - Cognitive disorder [Unknown]
  - Jaundice neonatal [Unknown]
